FAERS Safety Report 11419134 (Version 1)
Quarter: 2015Q3

REPORT INFORMATION
  Report Type: Report from Study
  Country: US (occurrence: US)
  Receive Date: 20150826
  Receipt Date: 20150826
  Transmission Date: 20151125
  Serious: Yes (Death, Hospitalization, Other)
  Sender: FDA-Public Use
  Company Number: US-ASTELLAS-2015US027839

PATIENT
  Sex: Female

DRUGS (78)
  1. ANZEMET [Concomitant]
     Active Substance: DOLASETRON MESYLATE
     Route: 042
  2. ATIVAN [Concomitant]
     Active Substance: LORAZEPAM
     Indication: PRODUCT USED FOR UNKNOWN INDICATION
     Dosage: 0.125 MG, 1 IN 1 WK
     Route: 042
  3. ATIVAN [Concomitant]
     Active Substance: LORAZEPAM
     Dosage: 0.5 MG, 1 IN 1 WK
     Route: 042
  4. OXYCODONE [Concomitant]
     Active Substance: OXYCODONE
     Indication: PRODUCT USED FOR UNKNOWN INDICATION
     Dosage: 5 MG, 1 IN 1 HR
     Route: 048
  5. PHENERGAN [Concomitant]
     Active Substance: PROMETHAZINE HYDROCHLORIDE
     Indication: PRODUCT USED FOR UNKNOWN INDICATION
     Dosage: UNK UNK, UNKNOWN FREQ.
     Route: 065
  6. DEMEROL [Concomitant]
     Active Substance: MEPERIDINE HYDROCHLORIDE
     Indication: PRODUCT USED FOR UNKNOWN INDICATION
     Route: 030
  7. CPT-11 [Concomitant]
     Active Substance: IRINOTECAN
     Route: 042
  8. AVASTIN [Suspect]
     Active Substance: BEVACIZUMAB
     Dosage: 550 MG, ONCE IN 2 WEEKS
     Route: 042
  9. KYTRIL [Suspect]
     Active Substance: GRANISETRON HYDROCHLORIDE
     Indication: PRODUCT USED FOR UNKNOWN INDICATION
     Dosage: 1 MG, 1 IN 1 D
     Route: 042
  10. ALIMTA [Concomitant]
     Active Substance: PEMETREXED DISODIUM
     Route: 042
  11. ALIMTA [Concomitant]
     Active Substance: PEMETREXED DISODIUM
     Route: 065
  12. TAXOL [Concomitant]
     Active Substance: PACLITAXEL
     Route: 042
  13. GEMZAR [Concomitant]
     Active Substance: GEMCITABINE HYDROCHLORIDE
     Indication: PRODUCT USED FOR UNKNOWN INDICATION
     Route: 042
  14. ZANTAC [Concomitant]
     Active Substance: RANITIDINE HYDROCHLORIDE
     Indication: PRODUCT USED FOR UNKNOWN INDICATION
     Dosage: 50 MG, 1 IN 1 WK
     Route: 042
  15. VITAMIN B12 [Concomitant]
     Active Substance: CYANOCOBALAMIN
     Indication: PRODUCT USED FOR UNKNOWN INDICATION
     Route: 030
  16. ATROPINE. [Concomitant]
     Active Substance: ATROPINE
     Indication: PRODUCT USED FOR UNKNOWN INDICATION
     Dosage: 0.4 MG, UNKNOWN FREQ.
     Route: 042
  17. NAVELBINE [Concomitant]
     Active Substance: VINORELBINE TARTRATE
     Indication: PRODUCT USED FOR UNKNOWN INDICATION
     Route: 042
  18. NAVELBINE [Concomitant]
     Active Substance: VINORELBINE TARTRATE
     Route: 042
  19. AVASTIN [Suspect]
     Active Substance: BEVACIZUMAB
     Dosage: 272 MG, ONCE IN 3 WEEKS
     Route: 042
  20. AVASTIN [Suspect]
     Active Substance: BEVACIZUMAB
     Dosage: 281 MG, ONCE IN 3 WEEKS
     Route: 042
  21. AVASTIN [Suspect]
     Active Substance: BEVACIZUMAB
     Dosage: 832 MG, ONCE IN 2 WEEKS
     Route: 042
  22. NEULASTA [Concomitant]
     Active Substance: PEGFILGRASTIM
     Indication: PRODUCT USED FOR UNKNOWN INDICATION
     Route: 058
  23. ALIMTA [Concomitant]
     Active Substance: PEMETREXED DISODIUM
     Indication: PRODUCT USED FOR UNKNOWN INDICATION
     Route: 042
  24. ATIVAN [Concomitant]
     Active Substance: LORAZEPAM
     Dosage: 1 MG, 1 IN 1 WK
     Route: 042
  25. CISPLATIN. [Concomitant]
     Active Substance: CISPLATIN
     Route: 042
  26. TAXOL [Concomitant]
     Active Substance: PACLITAXEL
     Dosage: 153 MG, 1 IN 1 WK
     Route: 042
  27. DURAGESIC [Concomitant]
     Active Substance: FENTANYL
     Dosage: 100 ?G, 1 IN 3 DAYS
     Route: 042
  28. OXYCONTIN [Concomitant]
     Active Substance: OXYCODONE HYDROCHLORIDE
     Indication: PRODUCT USED FOR UNKNOWN INDICATION
     Dosage: UNK UNK, UNKNOWN FREQ.
     Route: 065
  29. DECADRON [Concomitant]
     Active Substance: DEXAMETHASONE
     Indication: PRODUCT USED FOR UNKNOWN INDICATION
     Dosage: 2 MG, 1 IN 1 WK
     Route: 042
  30. GEMZAR [Concomitant]
     Active Substance: GEMCITABINE HYDROCHLORIDE
     Route: 042
  31. HYCODAN                            /01224801/ [Concomitant]
     Indication: PRODUCT USED FOR UNKNOWN INDICATION
     Dosage: UNK UNK, UNKNOWN FREQ.
     Route: 065
  32. FLOVENT [Concomitant]
     Active Substance: FLUTICASONE PROPIONATE
     Indication: PRODUCT USED FOR UNKNOWN INDICATION
     Dosage: UNK UNK, UNKNOWN FREQ.
     Route: 065
  33. ANTIVERT                           /00072802/ [Concomitant]
     Indication: PRODUCT USED FOR UNKNOWN INDICATION
     Dosage: UNK UNK, UNKNOWN FREQ.
     Route: 065
  34. FOLIC ACID. [Concomitant]
     Active Substance: FOLIC ACID
     Indication: PRODUCT USED FOR UNKNOWN INDICATION
     Route: 042
  35. EMEND [Concomitant]
     Active Substance: APREPITANT
     Indication: PRODUCT USED FOR UNKNOWN INDICATION
     Dosage: UNK UNK, UNKNOWN FREQ.
     Route: 048
  36. TAXOTERE [Concomitant]
     Active Substance: DOCETAXEL
     Dosage: 55 MG, 1 IN 2 WK
     Route: 042
  37. CARBOPLATIN. [Concomitant]
     Active Substance: CARBOPLATIN
     Dosage: 500 MG, 1 IN 1 WK
     Route: 042
  38. DURAGESIC [Concomitant]
     Active Substance: FENTANYL
     Indication: PRODUCT USED FOR UNKNOWN INDICATION
     Dosage: 25 ?G, 1 IN 3 DAYS
     Route: 042
  39. DECADRON [Concomitant]
     Active Substance: DEXAMETHASONE
     Dosage: 4 MG, 1 IN  1WK
     Route: 042
  40. BENADRYL [Concomitant]
     Active Substance: DIPHENHYDRAMINE HYDROCHLORIDE
     Dosage: 25 MG, 1 IN 1 WK
     Route: 042
  41. ASPIRIN. [Concomitant]
     Active Substance: ASPIRIN
     Indication: PRODUCT USED FOR UNKNOWN INDICATION
     Route: 065
  42. NEUPOGEN [Concomitant]
     Active Substance: FILGRASTIM
     Indication: PRODUCT USED FOR UNKNOWN INDICATION
     Route: 058
  43. KLONOPIN [Concomitant]
     Active Substance: CLONAZEPAM
     Indication: PRODUCT USED FOR UNKNOWN INDICATION
     Dosage: UNK UNK, UNKNOWN FREQ.
     Route: 065
  44. ERLOTINIB [Suspect]
     Active Substance: ERLOTINIB
     Indication: MALIGNANT RESPIRATORY TRACT NEOPLASM
     Route: 048
  45. ERLOTINIB [Suspect]
     Active Substance: ERLOTINIB
     Indication: LUNG NEOPLASM MALIGNANT
  46. KYTRIL [Suspect]
     Active Substance: GRANISETRON HYDROCHLORIDE
     Route: 042
  47. TAXOL [Concomitant]
     Active Substance: PACLITAXEL
     Dosage: 155 MG, 1 IN 1 WK
     Route: 042
  48. RITALIN [Concomitant]
     Active Substance: METHYLPHENIDATE HYDROCHLORIDE
     Route: 065
  49. DECADRON [Concomitant]
     Active Substance: DEXAMETHASONE
     Dosage: 8 MG, 1 IN 1 WK
     Route: 042
  50. NEUPOGEN [Concomitant]
     Active Substance: FILGRASTIM
     Route: 058
  51. TAXOTERE [Concomitant]
     Active Substance: DOCETAXEL
     Dosage: 50 MG/M2, 1 IN 2 D
     Route: 042
  52. TAXOTERE [Concomitant]
     Active Substance: DOCETAXEL
     Dosage: 76 MG/M2, 1 IN 2 WK
     Route: 042
  53. CARBOPLATIN. [Concomitant]
     Active Substance: CARBOPLATIN
     Indication: PRODUCT USED FOR UNKNOWN INDICATION
     Dosage: 359 MG, 11 IN 1 D
     Route: 042
  54. TAXOL [Concomitant]
     Active Substance: PACLITAXEL
     Dosage: 150 MG, 1 IN 1 WK
     Route: 042
  55. RITALIN [Concomitant]
     Active Substance: METHYLPHENIDATE HYDROCHLORIDE
     Indication: PRODUCT USED FOR UNKNOWN INDICATION
     Route: 065
  56. ADVIL (MEFENAMIC ACID) [Concomitant]
     Active Substance: MEFENAMIC ACID
     Indication: PRODUCT USED FOR UNKNOWN INDICATION
     Dosage: UNK UNK, UNKNOWN FREQ.
     Route: 065
  57. GEMZAR [Concomitant]
     Active Substance: GEMCITABINE HYDROCHLORIDE
     Route: 042
  58. BENADRYL [Concomitant]
     Active Substance: DIPHENHYDRAMINE HYDROCHLORIDE
     Dosage: 15 MG, 1 IN  1 WK
     Route: 042
  59. TRAMADOL. [Concomitant]
     Active Substance: TRAMADOL
     Indication: PRODUCT USED FOR UNKNOWN INDICATION
     Dosage: UNK UNK, UNKNOWN FREQ.
     Route: 065
  60. AVASTIN [Suspect]
     Active Substance: BEVACIZUMAB
     Indication: LUNG NEOPLASM MALIGNANT
     Dosage: 5 MG/KG, ONCE IN 2 WEEKS
     Route: 042
     Dates: start: 20050609
  61. AVASTIN [Suspect]
     Active Substance: BEVACIZUMAB
     Dosage: 268 MG, ONCE IN 2 WEEKS
     Route: 042
  62. AVASTIN [Suspect]
     Active Substance: BEVACIZUMAB
     Dosage: 275 MG, ONCE IN 2 WEEKS
     Route: 042
  63. ARANESP [Concomitant]
     Active Substance: DARBEPOETIN ALFA
     Indication: PRODUCT USED FOR UNKNOWN INDICATION
     Route: 058
  64. ATIVAN [Concomitant]
     Active Substance: LORAZEPAM
     Dosage: 0.25 MG, 1 IN 1 WK
     Route: 042
  65. CISPLATIN. [Concomitant]
     Active Substance: CISPLATIN
     Indication: PRODUCT USED FOR UNKNOWN INDICATION
     Dosage: 40 MG/M2, 1 IN 1 WK
     Route: 042
  66. CISPLATIN. [Concomitant]
     Active Substance: CISPLATIN
     Dosage: 60 MG/M2,1 IN 1 WK
     Route: 042
  67. TAXOL [Concomitant]
     Active Substance: PACLITAXEL
     Indication: PRODUCT USED FOR UNKNOWN INDICATION
     Dosage: 100 MG/M2, 1 IN 2 WK
     Route: 042
  68. TAXOL [Concomitant]
     Active Substance: PACLITAXEL
     Dosage: 154 MG, 1 IN 1 WK
     Route: 042
  69. TESSALON [Concomitant]
     Active Substance: BENZONATATE
     Indication: PRODUCT USED FOR UNKNOWN INDICATION
     Dosage: UNK UNK, UNKNOWN FREQ.
     Route: 065
  70. CPT-11 [Concomitant]
     Active Substance: IRINOTECAN
     Indication: PRODUCT USED FOR UNKNOWN INDICATION
     Route: 042
  71. AVASTIN [Suspect]
     Active Substance: BEVACIZUMAB
     Indication: MALIGNANT RESPIRATORY TRACT NEOPLASM
     Dosage: 15 MG/KG, ONCE IN 3 WEEKS
     Route: 042
  72. TAXOTERE [Concomitant]
     Active Substance: DOCETAXEL
     Indication: PRODUCT USED FOR UNKNOWN INDICATION
     Dosage: 36 MG/M2, 1 IN 2 WK
     Route: 042
  73. ARANESP [Concomitant]
     Active Substance: DARBEPOETIN ALFA
     Route: 058
  74. ANZEMET [Concomitant]
     Active Substance: DOLASETRON MESYLATE
     Indication: PRODUCT USED FOR UNKNOWN INDICATION
     Dosage: 100 MG, 1 IN 1 WK
     Route: 042
  75. TAXOL [Concomitant]
     Active Substance: PACLITAXEL
     Dosage: 156 MG, 1 IN 1 WK
     Route: 042
  76. DECADRON [Concomitant]
     Active Substance: DEXAMETHASONE
     Dosage: 10 MG, 1 IN 1 WK
     Route: 042
  77. BENADRYL [Concomitant]
     Active Substance: DIPHENHYDRAMINE HYDROCHLORIDE
     Indication: PRODUCT USED FOR UNKNOWN INDICATION
     Dosage: 12.5 MG, 1 IN 1 WK
     Route: 042
  78. CPT-11 [Concomitant]
     Active Substance: IRINOTECAN
     Route: 042

REACTIONS (31)
  - Pericardial effusion [Unknown]
  - Abdominal pain [Unknown]
  - Lethargy [Unknown]
  - Back pain [Unknown]
  - Nausea [Unknown]
  - Rash [Recovered/Resolved]
  - Lung infiltration [Unknown]
  - Diarrhoea [Unknown]
  - Decreased appetite [Unknown]
  - Tooth disorder [Unknown]
  - Dyspnoea [Unknown]
  - Stomatitis [Unknown]
  - Hypersomnia [Unknown]
  - Abdominal tenderness [Unknown]
  - Dizziness [Unknown]
  - Vomiting [Unknown]
  - Malignant neoplasm progression [Unknown]
  - Alopecia [Unknown]
  - Pleural effusion [Unknown]
  - Pneumonia [Unknown]
  - Asthenia [Unknown]
  - Weight decreased [Unknown]
  - Headache [Unknown]
  - Oedema [Unknown]
  - Fatigue [Unknown]
  - Off label use [Unknown]
  - Chills [Unknown]
  - Musculoskeletal pain [Unknown]
  - Cough [Unknown]
  - Death [Fatal]
  - Chest pain [Recovered/Resolved]
